FAERS Safety Report 7583212-8 (Version None)
Quarter: 2011Q2

REPORT INFORMATION
  Report Type: 
  Country: None (occurrence: None)
  Receive Date: 20110623
  Receipt Date: 20110606
  Transmission Date: 20111010
  Serious: Yes (Other)
  Sender: FDA-Public Use
  Company Number: 2011SP027544

PATIENT

DRUGS (1)
  1. AFRIN [Suspect]
     Indication: RHINITIS ALLERGIC
     Dosage: NAS
     Route: 045

REACTIONS (2)
  - EPISTAXIS [None]
  - NASAL SEPTUM PERFORATION [None]
